FAERS Safety Report 13989782 (Version 1)
Quarter: 2017Q3

REPORT INFORMATION
  Report Type: Spontaneous
  Country: US (occurrence: US)
  Receive Date: 20170920
  Receipt Date: 20170920
  Transmission Date: 20171128
  Serious: Yes (Life-Threatening, Hospitalization, Disabling, Other)
  Sender: FDA-Public Use
  Company Number: None

PATIENT
  Age: 14 Year
  Sex: Female
  Weight: 15.75 kg

DRUGS (5)
  1. PREVACID SOLUTAB [Concomitant]
     Active Substance: LANSOPRAZOLE
  2. TYLENOL [Concomitant]
     Active Substance: ACETAMINOPHEN
  3. ALBUTEROL. [Concomitant]
     Active Substance: ALBUTEROL
  4. CIPRO [Suspect]
     Active Substance: CIPROFLOXACIN HYDROCHLORIDE
     Indication: PSEUDOMONAS INFECTION
     Route: 048
     Dates: start: 20131031, end: 20170630
  5. PULMICORT TURBUHALER [Concomitant]
     Active Substance: BUDESONIDE

REACTIONS (3)
  - Nerve injury [None]
  - Gastrointestinal pain [None]
  - Gastrointestinal disorder [None]
